FAERS Safety Report 24319905 (Version 1)
Quarter: 2024Q3

REPORT INFORMATION
  Report Type: Report from Study
  Country: GR (occurrence: GR)
  Receive Date: 20240914
  Receipt Date: 20240914
  Transmission Date: 20241016
  Serious: No
  Sender: SANDOZ
  Company Number: GR-SANDOZ-SDZ2024GR025567

PATIENT
  Age: 9 Year
  Sex: Male

DRUGS (1)
  1. OMNITROPE [Suspect]
     Active Substance: SOMATROPIN
     Indication: Growth hormone deficiency
     Dosage: 1 MG
     Route: 058
     Dates: start: 20210505

REACTIONS (4)
  - Incorrect dose administered [Unknown]
  - Product dose omission issue [Unknown]
  - Product use issue [Unknown]
  - Device malfunction [Unknown]

NARRATIVE: CASE EVENT DATE: 20210505
